FAERS Safety Report 15731464 (Version 1)
Quarter: 2018Q4

REPORT INFORMATION
  Report Type: Spontaneous
  Country: US (occurrence: US)
  Receive Date: 20181217
  Receipt Date: 20181217
  Transmission Date: 20190205
  Serious: No
  Sender: FDA-Public Use
  Company Number: US-TEVA-2018-US-983525

PATIENT
  Age: 89 Year
  Sex: Female

DRUGS (1)
  1. CLOTRIMAZOLE AND BETAMETHASON DIPROPIONATE ACTAVIS [Suspect]
     Active Substance: BETAMETHASONE DIPROPIONATE\CLOTRIMAZOLE
     Indication: TINEA PEDIS
     Dosage: CLOTRIMAZOLE 1 %/ BETAMETHASONE DIPROPIONATE 0.05 %
     Route: 065
     Dates: start: 20181128

REACTIONS (1)
  - Drug ineffective [Unknown]

NARRATIVE: CASE EVENT DATE: 20181128
